FAERS Safety Report 17643327 (Version 1)
Quarter: 2020Q2

REPORT INFORMATION
  Report Type: Spontaneous
  Country: US (occurrence: US)
  Receive Date: 20200407
  Receipt Date: 20200407
  Transmission Date: 20200713
  Serious: Yes (Death)
  Sender: FDA-Public Use
  Company Number: None

PATIENT
  Age: 68 Year
  Sex: Male
  Weight: 103.77 kg

DRUGS (18)
  1. NORTRIPTYLINE HCL 25MG,ORAL [Concomitant]
  2. STIOLTO RESPIMAT, 2.5 - 2.5MG, INHALER [Concomitant]
  3. SYMBICORT 160 - 4.5MG, INHALER [Concomitant]
  4. KEYTRUDA 100MG/4ML, IV [Concomitant]
  5. LEVOTHYROXINE 75 MCG,ORAL [Concomitant]
  6. ONDANSETRON, 8MG, ORAL [Concomitant]
  7. LIDOCAINE-PRILOCAINE 2.5-2.5%,EXTERNAL [Concomitant]
  8. LEVETIRACETAM 750MG, ORAL [Concomitant]
  9. HYDROCORTISONE ACE-PRAMOZINE 2.5 -1 %, EXTERNAL [Concomitant]
  10. PYRIDOXINE 100MG, ORAL [Concomitant]
  11. OLMESARTAN MEDOXOMIL 40MG, ORAL [Concomitant]
  12. DEXAMETHASONE 4MG ,ORAL [Concomitant]
  13. PRAVASTATIN SODIUM 40MG, ORAL [Concomitant]
  14. CLOPRAZEPATE DIPOTASSIUM 3.75MG, ORAL [Concomitant]
  15. TEMOZOLOMIDE. [Suspect]
     Active Substance: TEMOZOLOMIDE
     Indication: LUNG NEOPLASM MALIGNANT
     Route: 048
     Dates: start: 20191206, end: 20200407
  16. PROMETHAZINE, 25MG, ORAL [Concomitant]
  17. NAPROXEN SODIUM 220MG, ORAL [Concomitant]
  18. FLUOXETINE 10MG, ORAL [Concomitant]

REACTIONS (1)
  - Death [None]

NARRATIVE: CASE EVENT DATE: 20200407
